FAERS Safety Report 6634207-X (Version None)
Quarter: 2010Q1

REPORT INFORMATION
  Report Type: 
  Country: None (occurrence: None)
  Receive Date: 20100315
  Receipt Date: 20100301
  Transmission Date: 20100710
  Serious: Yes (Other)
  Sender: FDA-Public Use
  Company Number: PHHY2010BR12131

PATIENT
  Age: 70 Year
  Sex: Female

DRUGS (3)
  1. DIOVAN HCT [Suspect]
     Indication: HYPERTENSION
     Dosage: ONE TABLET (160/12.5 MG)
     Route: 048
  2. BROMAZEPAM [Concomitant]
     Indication: SLEEP DISORDER
     Dosage: 3 MG, UNK
     Dates: start: 20020101
  3. NEULEPTIL [Concomitant]
     Indication: SLEEP DISORDER
     Dosage: 8 DROPS AT NIGHT ORAL TO SLEEP
     Route: 048

REACTIONS (11)
  - DEPRESSED LEVEL OF CONSCIOUSNESS [None]
  - FALL [None]
  - HIP FRACTURE [None]
  - HIP SURGERY [None]
  - HYPERTENSIVE CRISIS [None]
  - HYPOTENSION [None]
  - JOINT DISLOCATION [None]
  - JOINT DISLOCATION REDUCTION [None]
  - PAIN [None]
  - SOMNOLENCE [None]
  - VOMITING [None]
